FAERS Safety Report 19732047 (Version 1)
Quarter: 2021Q3

REPORT INFORMATION
  Report Type: Report from Study
  Country: US (occurrence: US)
  Receive Date: 20210820
  Receipt Date: 20210820
  Transmission Date: 20211014
  Serious: Yes (Other)
  Sender: FDA-Public Use
  Company Number: US-TAIHO ONCOLOGY  INC-EU-2021-02642

PATIENT
  Age: 61 Year
  Sex: Male

DRUGS (18)
  1. ATENOLOL. [Concomitant]
     Active Substance: ATENOLOL
  2. CYCLOBENZAPRINE. [Concomitant]
     Active Substance: CYCLOBENZAPRINE
  3. IMODIUM AD [Concomitant]
     Active Substance: LOPERAMIDE HYDROCHLORIDE
  4. VIT C GUMM [Concomitant]
  5. LONSURF [Suspect]
     Active Substance: TIPIRACIL HYDROCHLORIDE\TRIFLURIDINE
     Indication: COLON CANCER
     Dosage: CYCLE UNKNOWN
     Route: 048
     Dates: start: 20201123
  6. DIPHENHYDRAMINE. [Concomitant]
     Active Substance: DIPHENHYDRAMINE
  7. LISINOPRIL. [Concomitant]
     Active Substance: LISINOPRIL
  8. QUESTRAN [Concomitant]
     Active Substance: CHOLESTYRAMINE
  9. TADALAFIL. [Concomitant]
     Active Substance: TADALAFIL
  10. TURMERIC [Concomitant]
     Active Substance: HERBALS\TURMERIC
  11. PIOGLITAZONE. [Concomitant]
     Active Substance: PIOGLITAZONE
  12. TYLENOL 8HR [Concomitant]
     Active Substance: ACETAMINOPHEN
  13. GABAPENTIN. [Concomitant]
     Active Substance: GABAPENTIN
  14. GLIMEPIRIDE. [Concomitant]
     Active Substance: GLIMEPIRIDE
  15. VIT D3 HP [Concomitant]
  16. METOFORMIN [Concomitant]
     Active Substance: METFORMIN HYDROCHLORIDE
  17. ONDANSETRON [Concomitant]
     Active Substance: ONDANSETRON
  18. KRILL OIL [Concomitant]
     Active Substance: DIETARY SUPPLEMENT\KRILL OIL

REACTIONS (1)
  - Nerve block [Recovered/Resolved]

NARRATIVE: CASE EVENT DATE: 202108
